FAERS Safety Report 9761277 (Version 1)
Quarter: 2013Q4

REPORT INFORMATION
  Report Type: Spontaneous
  Country: US (occurrence: US)
  Receive Date: 20131216
  Receipt Date: 20131216
  Transmission Date: 20140711
  Serious: No
  Sender: FDA-Public Use
  Company Number: US-FOUGERA-2013FO000293

PATIENT
  Sex: Male
  Weight: 90.8 kg

DRUGS (1)
  1. SOLARAZE [Suspect]
     Indication: PRECANCEROUS SKIN LESION
     Route: 061
     Dates: start: 2013

REACTIONS (7)
  - Application site hypersensitivity [Not Recovered/Not Resolved]
  - Application site burn [Not Recovered/Not Resolved]
  - Application site vesicles [Not Recovered/Not Resolved]
  - Application site dryness [Not Recovered/Not Resolved]
  - Feeding disorder [Not Recovered/Not Resolved]
  - Off label use [Unknown]
  - Expired drug administered [Not Recovered/Not Resolved]
